FAERS Safety Report 8287273-2 (Version None)
Quarter: 2012Q2

REPORT INFORMATION
  Report Type: 
  Country: None (occurrence: None)
  Receive Date: 20120416
  Receipt Date: 20120416
  Transmission Date: 20120825
  Serious: Yes (Other)
  Sender: FDA-Public Use
  Company Number: None

PATIENT
  Age: 2 Year
  Sex: Male
  Weight: 13.607 kg

DRUGS (1)
  1. AMOXICILLIN [Suspect]
     Indication: EAR INFECTION
     Dosage: 7.5 ML
     Route: 048
     Dates: start: 20120228, end: 20120307

REACTIONS (3)
  - RASH [None]
  - URTICARIA [None]
  - JOINT SWELLING [None]
